FAERS Safety Report 23790226 (Version 3)
Quarter: 2024Q2

REPORT INFORMATION
  Report Type: Other
  Country: US (occurrence: None)
  Receive Date: 20240426
  Receipt Date: 20240514
  Transmission Date: 20240715
  Serious: Yes (Death)
  Sender: FDA-Public Use
  Company Number: US-ROCHE-3553389

PATIENT
  Age: 81 Year
  Sex: Male

DRUGS (1)
  1. AVASTIN [Suspect]
     Active Substance: BEVACIZUMAB
     Indication: Hereditary haemorrhagic telangiectasia
     Dosage: 298MG
     Route: 065
     Dates: start: 20240222

REACTIONS (2)
  - Death [Fatal]
  - Off label use [Unknown]
